FAERS Safety Report 9928431 (Version 1)
Quarter: 2014Q1

REPORT INFORMATION
  Report Type: Spontaneous
  Country: DE (occurrence: None)
  Receive Date: 20140224
  Receipt Date: 20140224
  Transmission Date: 20141002
  Serious: Yes (Hospitalization, Congenital Anomaly, Other)
  Sender: FDA-Public Use
  Company Number: AUR-APL-2014-01886

PATIENT
  Age: 1 Day
  Sex: Female
  Weight: 2.49 kg

DRUGS (5)
  1. LAMOTRIGINE (LAMOTRIGINE) [Suspect]
     Indication: BIPOLAR DISORDER
     Dates: start: 20120505, end: 20130124
  2. LAMOTRIGINE (LAMOTRIGINE) [Suspect]
     Indication: DISEASE RECURRENCE
     Dates: start: 20120505, end: 20130124
  3. VENLAFAXINE (VENLAFAXINE) [Suspect]
     Indication: DEPRESSION
     Dates: start: 20120605, end: 20130124
  4. VOMEX A [Suspect]
     Indication: VOMITING IN PREGNANCY
     Route: 064
  5. FOLASURE (FLOIC ACID) [Concomitant]

REACTIONS (5)
  - Foetal exposure during pregnancy [None]
  - Foetal exposure during pregnancy [None]
  - Foetal heart rate deceleration abnormality [None]
  - Ventricular septal defect [None]
  - Atrial septal defect [None]
